FAERS Safety Report 16306087 (Version 1)
Quarter: 2020Q3

REPORT INFORMATION
  Report Type: Report from Study
  Country: PL (occurrence: PL)
  Receive Date: 20190513
  Receipt Date: 20190513
  Transmission Date: 20201104
  Serious: Yes (Hospitalization)
  Sender: FDA-Public Use
  Company Number: PL-JNJFOC-20180814823

PATIENT
  Age: 42 Year
  Sex: Male
  Weight: 90 kg

DRUGS (29)
  1. CLOMIPRAMINE [Concomitant]
     Active Substance: CLOMIPRAMINE
     Indication: MAJOR DEPRESSION
     Route: 048
     Dates: start: 20180716
  2. CLOMIPRAMINE [Concomitant]
     Active Substance: CLOMIPRAMINE
     Indication: MAJOR DEPRESSION
     Route: 048
     Dates: start: 20180716
  3. OLANZAPINE. [Concomitant]
     Active Substance: OLANZAPINE
     Indication: MAJOR DEPRESSION
     Route: 048
     Dates: start: 20180706, end: 20180708
  4. OLANZAPINE. [Concomitant]
     Active Substance: OLANZAPINE
     Indication: MAJOR DEPRESSION
     Route: 048
     Dates: start: 20180716
  5. LORAZEPAM. [Concomitant]
     Active Substance: LORAZEPAM
     Indication: MAJOR DEPRESSION
     Route: 048
     Dates: start: 20180713, end: 20180713
  6. CLOMIPRAMINE [Concomitant]
     Active Substance: CLOMIPRAMINE
     Indication: MAJOR DEPRESSION
     Route: 048
     Dates: start: 20180630, end: 20180702
  7. CLOMIPRAMINE [Concomitant]
     Active Substance: CLOMIPRAMINE
     Indication: MAJOR DEPRESSION
     Route: 048
     Dates: start: 20180703, end: 20180703
  8. LORAZEPAM. [Concomitant]
     Active Substance: LORAZEPAM
     Indication: MAJOR DEPRESSION
     Route: 048
     Dates: start: 20180715, end: 20180715
  9. ESKETAMINE [Suspect]
     Active Substance: ESKETAMINE
     Indication: MAJOR DEPRESSION
     Route: 045
     Dates: start: 20180704, end: 20180728
  10. CLOMIPRAMINE [Concomitant]
     Active Substance: CLOMIPRAMINE
     Indication: MAJOR DEPRESSION
     Route: 048
     Dates: start: 20180703, end: 20180703
  11. LORAZEPAM. [Concomitant]
     Active Substance: LORAZEPAM
     Indication: MAJOR DEPRESSION
     Route: 048
     Dates: start: 20180629, end: 20180629
  12. LORAZEPAM. [Concomitant]
     Active Substance: LORAZEPAM
     Indication: MAJOR DEPRESSION
     Route: 048
     Dates: start: 20180630, end: 20180702
  13. LORAZEPAM. [Concomitant]
     Active Substance: LORAZEPAM
     Indication: MAJOR DEPRESSION
     Route: 048
     Dates: start: 20180710, end: 20180711
  14. OLANZAPINE. [Concomitant]
     Active Substance: OLANZAPINE
     Indication: MAJOR DEPRESSION
     Route: 048
     Dates: start: 20180629, end: 20180703
  15. OLANZAPINE. [Concomitant]
     Active Substance: OLANZAPINE
     Indication: MAJOR DEPRESSION
     Route: 048
     Dates: start: 20180705, end: 20180705
  16. LORAZEPAM. [Concomitant]
     Active Substance: LORAZEPAM
     Indication: MAJOR DEPRESSION
     Route: 048
     Dates: start: 20180713, end: 20180714
  17. LORAZEPAM. [Concomitant]
     Active Substance: LORAZEPAM
     Indication: MAJOR DEPRESSION
     Route: 048
     Dates: start: 20180716, end: 20180717
  18. ESKETAMINE [Suspect]
     Active Substance: ESKETAMINE
     Indication: SUICIDAL IDEATION
     Route: 045
     Dates: start: 20180704, end: 20180728
  19. CLOMIPRAMINE [Concomitant]
     Active Substance: CLOMIPRAMINE
     Indication: MAJOR DEPRESSION
     Route: 048
     Dates: start: 20180704, end: 20180715
  20. OLANZAPINE. [Concomitant]
     Active Substance: OLANZAPINE
     Indication: MAJOR DEPRESSION
     Route: 048
     Dates: start: 20180704, end: 20180704
  21. OLANZAPINE. [Concomitant]
     Active Substance: OLANZAPINE
     Indication: MAJOR DEPRESSION
     Route: 048
     Dates: start: 20180714, end: 20180715
  22. LORAZEPAM. [Concomitant]
     Active Substance: LORAZEPAM
     Indication: MAJOR DEPRESSION
     Route: 048
     Dates: start: 20180707, end: 20180708
  23. LORAZEPAM. [Concomitant]
     Active Substance: LORAZEPAM
     Indication: MAJOR DEPRESSION
     Route: 048
     Dates: start: 20180709, end: 20180709
  24. LORAZEPAM. [Concomitant]
     Active Substance: LORAZEPAM
     Indication: MAJOR DEPRESSION
     Route: 048
     Dates: start: 20180712, end: 20180712
  25. OLANZAPINE. [Concomitant]
     Active Substance: OLANZAPINE
     Indication: MAJOR DEPRESSION
     Route: 048
     Dates: start: 20180709, end: 20180713
  26. LORAZEPAM. [Concomitant]
     Active Substance: LORAZEPAM
     Indication: MAJOR DEPRESSION
     Route: 048
     Dates: start: 20180704, end: 20180706
  27. OLANZAPINE. [Concomitant]
     Active Substance: OLANZAPINE
     Indication: MAJOR DEPRESSION
     Route: 048
     Dates: start: 20180705, end: 20180705
  28. LORAZEPAM. [Concomitant]
     Active Substance: LORAZEPAM
     Indication: MAJOR DEPRESSION
     Route: 048
     Dates: start: 20180703, end: 20180703
  29. LORAZEPAM. [Concomitant]
     Active Substance: LORAZEPAM
     Indication: MAJOR DEPRESSION
     Route: 048
     Dates: start: 20180709, end: 20180711

REACTIONS (1)
  - Major depression [Recovered/Resolved]

NARRATIVE: CASE EVENT DATE: 20180808
